FAERS Safety Report 5477674-X (Version None)
Quarter: 2007Q4

REPORT INFORMATION
  Report Type: 
  Country: None (occurrence: None)
  Receive Date: 20071003
  Receipt Date: 20071003
  Transmission Date: 20080405
  Serious: No
  Sender: FDA-Public Use
  Company Number: None

PATIENT
  Age: 25 Year
  Sex: Female

DRUGS (2)
  1. MYDRIACYL [Suspect]
     Dosage: INTRAOCULAR;;0;0
     Route: 031
     Dates: start: 20070911, end: 20070911
  2. PROPARACAINE HCL [Suspect]
     Dosage: INTRAOCULAR;;0;0
     Route: 031
     Dates: start: 20070911, end: 20070911

REACTIONS (2)
  - DIZZINESS [None]
  - NAUSEA [None]
